FAERS Safety Report 8771252 (Version 1)
Quarter: 2012Q4

REPORT INFORMATION
  Report Type: 
  Country: US (occurrence: US)
  Receive Date: 20120905
  Receipt Date: 20120905
  Transmission Date: 20130627
  Serious: Yes (Other)
  Sender: FDA-Public Use
  Company Number: US-PFIZER INC-2012217422

PATIENT

DRUGS (1)
  1. SUTENT [Suspect]
     Dosage: 50 mg, UNK

REACTIONS (1)
  - Pulmonary embolism [Unknown]
